FAERS Safety Report 6805708-6 (Version None)
Quarter: 2010Q2

REPORT INFORMATION
  Report Type: 
  Country: None (occurrence: None)
  Receive Date: 20100628
  Receipt Date: 20080611
  Transmission Date: 20101027
  Serious: Yes (Other)
  Sender: FDA-Public Use
  Company Number: US-PFIZER INC-2008049526

PATIENT
  Sex: Male
  Weight: 77.1 kg

DRUGS (2)
  1. SUTENT [Suspect]
     Indication: RENAL CELL CARCINOMA
     Dates: start: 20080101
  2. ZOMETA [Concomitant]
     Dosage: ONCE MONTHLY
     Route: 042

REACTIONS (2)
  - DIARRHOEA [None]
  - WEIGHT DECREASED [None]
